FAERS Safety Report 5129206-3 (Version None)
Quarter: 2006Q4

REPORT INFORMATION
  Report Type: 
  Country: None (occurrence: None)
  Receive Date: 20061012
  Receipt Date: 20060919
  Transmission Date: 20070319
  Serious: No
  Sender: FDA-Public Use
  Company Number: 20060198 /

PATIENT
  Age: 68 Year
  Sex: Female

DRUGS (3)
  1. METHYLENE BLUE INJECTION, USP (0301-10) [Suspect]
     Indication: DIAGNOSTIC PROCEDURE
     Dosage: 2.5 - 3 ML
  2. TECHNETIUM TC 99M SULFUR COLLOID [Concomitant]
  3. BUPIVACAINE [Concomitant]

REACTIONS (3)
  - INJECTION SITE IRRITATION [None]
  - SKIN GRAFT [None]
  - SKIN NECROSIS [None]
